FAERS Safety Report 5195371-5 (Version None)
Quarter: 2006Q4

REPORT INFORMATION
  Report Type: 
  Country: None (occurrence: None)
  Receive Date: 20061229
  Receipt Date: 20061219
  Transmission Date: 20070319
  Serious: Yes (Congenital Anomaly)
  Sender: FDA-Public Use
  Company Number: US-PFIZER INC-2006155292

PATIENT
  Sex: Male

DRUGS (1)
  1. DIFLUCAN ORAL TABLETS FOR VAGINAL CANDIDIASIS [Suspect]
     Indication: VULVOVAGINAL MYCOTIC INFECTION
     Dosage: DAILY DOSE:150MG
     Route: 064
     Dates: start: 20061218, end: 20061218

REACTIONS (3)
  - CLEFT LIP AND PALATE [None]
  - DRUG EXPOSURE DURING PREGNANCY [None]
  - HYPOPLASTIC LEFT HEART SYNDROME [None]
